FAERS Safety Report 4358751-3 (Version None)
Quarter: 2004Q2

REPORT INFORMATION
  Report Type: 
  Country: None (occurrence: None)
  Receive Date: 20040511
  Receipt Date: 20040430
  Transmission Date: 20050107
  Serious: Yes (Other)
  Sender: FDA-Public Use
  Company Number: 2004016722

PATIENT
  Age: 65 Year
  Sex: Female
  Weight: 55.3388 kg

DRUGS (6)
  1. DILANTIN [Suspect]
     Indication: CONVULSION
     Dosage: ORAL
     Route: 048
  2. WARFARIN SODIUM [Concomitant]
  3. MULTIVITAMIN [Concomitant]
  4. ASCORBID ACID [Concomitant]
  5. RISEDRONATE SODIUM [Concomitant]
  6. DIGOXIN [Concomitant]

REACTIONS (4)
  - ATRIAL FIBRILLATION [None]
  - CONVULSION [None]
  - COORDINATION ABNORMAL [None]
  - DRUG LEVEL INCREASED [None]
